FAERS Safety Report 21547040 (Version 1)
Quarter: 2022Q4

REPORT INFORMATION
  Report Type: Spontaneous
  Country: US (occurrence: None)
  Receive Date: 20221101
  Receipt Date: 20221101
  Transmission Date: 20230112
  Serious: Yes (Life-Threatening, Hospitalization)
  Sender: FDA-Public Use
  Company Number: None

PATIENT

DRUGS (2)
  1. HYDROMORPHONE [Suspect]
     Active Substance: HYDROMORPHONE
     Indication: Mental status changes
  2. OXYCODONE [Suspect]
     Active Substance: OXYCODONE

REACTIONS (1)
  - Mental status changes [None]

NARRATIVE: CASE EVENT DATE: 20210131
